FAERS Safety Report 5194188-5 (Version None)
Quarter: 2007Q1

REPORT INFORMATION
  Report Type: 
  Country: None (occurrence: None)
  Receive Date: 20061222
  Receipt Date: 20061219
  Transmission Date: 20070707
  Serious: Yes (Other)
  Sender: FDA-Public Use
  Company Number: US-1160149

PATIENT
  Sex: Male

DRUGS (1)
  1. SYSTANE LURICANT [Suspect]
     Indication: CONJUNCTIVITIS INFECTIVE
     Dosage: 1 GTT QID OPHTHALMIC
     Route: 047
     Dates: start: 20061124

REACTIONS (11)
  - BLINDNESS UNILATERAL [None]
  - BURNING SENSATION [None]
  - CONVULSION [None]
  - CRYING [None]
  - DELIRIUM [None]
  - EYE PAIN [None]
  - FEELING JITTERY [None]
  - NERVOUS SYSTEM DISORDER [None]
  - PAIN [None]
  - PHOTOPHOBIA [None]
  - RASH [None]
